FAERS Safety Report 15238602 (Version 2)
Quarter: 2018Q3

REPORT INFORMATION
  Report Type: Spontaneous
  Country: US (occurrence: US)
  Receive Date: 20180803
  Receipt Date: 20180823
  Transmission Date: 20181010
  Serious: No
  Sender: FDA-Public Use
  Company Number: US-TEVA-2018-US-936461

PATIENT

DRUGS (1)
  1. VALSARTAN. [Suspect]
     Active Substance: VALSARTAN
     Indication: HYPERTENSION
     Route: 065

REACTIONS (5)
  - Headache [Unknown]
  - Diarrhoea [Unknown]
  - Asthenia [Unknown]
  - Ill-defined disorder [Unknown]
  - Weight decreased [Unknown]
